FAERS Safety Report 7486612-X (Version None)
Quarter: 2011Q2

REPORT INFORMATION
  Report Type: 
  Country: None (occurrence: None)
  Receive Date: 20110517
  Receipt Date: 20100921
  Transmission Date: 20111010
  Serious: No
  Sender: FDA-Public Use
  Company Number: US-NOVEN-ALL1-2010-04989

PATIENT
  Sex: Female
  Weight: 47.619 kg

DRUGS (2)
  1. DAYTRANA [Suspect]
     Dosage: 15 MG, 1X/DAY:QD
     Route: 048
     Dates: start: 20100916
  2. CEPHALEXIN [Concomitant]
     Dosage: 500 MG, 2X/DAY:BID
     Route: 048
     Dates: start: 20100915

REACTIONS (6)
  - APPLICATION SITE ANAESTHESIA [None]
  - PRODUCT ADHESION ISSUE [None]
  - DRUG ADMINISTERED AT INAPPROPRIATE SITE [None]
  - DRUG INEFFECTIVE [None]
  - APPLICATION SITE PARAESTHESIA [None]
  - MALAISE [None]
